FAERS Safety Report 21447078 (Version 2)
Quarter: 2022Q4

REPORT INFORMATION
  Report Type: Spontaneous
  Country: GB (occurrence: None)
  Receive Date: 20221012
  Receipt Date: 20221109
  Transmission Date: 20230112
  Serious: Yes (Hospitalization, Other)
  Sender: FDA-Public Use
  Company Number: 2022A340045

PATIENT
  Age: 76 Year
  Sex: Male

DRUGS (6)
  1. DAPAGLIFLOZIN [Suspect]
     Active Substance: DAPAGLIFLOZIN
     Indication: Cardiac failure
     Dosage: DOSE 10, UNIT 3
     Route: 048
     Dates: start: 20220809
  2. BISOPROLOL [Concomitant]
     Active Substance: BISOPROLOL
     Dosage: 2.5
     Route: 048
     Dates: start: 20190130
  3. ISOSORBIDE MONONITRATE [Concomitant]
     Active Substance: ISOSORBIDE MONONITRATE
     Dosage: 20, UNKNOWN
     Route: 048
     Dates: start: 20180103
  4. LOSARTAN [Concomitant]
     Active Substance: LOSARTAN
     Route: 048
     Dates: start: 20091111
  5. WARFARIN [Concomitant]
     Active Substance: WARFARIN
     Route: 048
     Dates: start: 20200920
  6. ATORVASTATIN [Concomitant]
     Active Substance: ATORVASTATIN
     Dosage: CHANGE OF DOSE - ORIGINALLY STARTED ON 20MG IN 2009
     Route: 048
     Dates: start: 20220809

REACTIONS (4)
  - Hepatitis [Recovering/Resolving]
  - Abdominal pain upper [Unknown]
  - Vomiting [Unknown]
  - Liver function test increased [Recovered/Resolved]

NARRATIVE: CASE EVENT DATE: 20220830
